FAERS Safety Report 16428020 (Version 3)
Quarter: 2019Q4

REPORT INFORMATION
  Report Type: Spontaneous
  Country: US (occurrence: US)
  Receive Date: 20190613
  Receipt Date: 20191028
  Transmission Date: 20200122
  Serious: No
  Sender: FDA-Public Use
  Company Number: US-SA-2019SA157834

PATIENT
  Age: 46 Year
  Sex: Female

DRUGS (1)
  1. KEVZARA [Suspect]
     Active Substance: SARILUMAB
     Indication: PRODUCT USED FOR UNKNOWN INDICATION
     Dosage: 200 MG, QOW
     Route: 058
     Dates: start: 201903

REACTIONS (5)
  - Contusion [Unknown]
  - Localised infection [Unknown]
  - Limb injury [Unknown]
  - Blister [Unknown]
  - Infection [Unknown]

NARRATIVE: CASE EVENT DATE: 201905
